FAERS Safety Report 8785940 (Version 3)
Quarter: 2015Q3

REPORT INFORMATION
  Report Type: Report from Study
  Country: US (occurrence: US)
  Receive Date: 20120914
  Receipt Date: 20150728
  Transmission Date: 20151125
  Serious: Yes (Death)
  Sender: FDA-Public Use
  Company Number: US-ROCHE-1128026

PATIENT
  Sex: Female

DRUGS (7)
  1. CARBOPLATIN. [Concomitant]
     Active Substance: CARBOPLATIN
     Route: 042
  2. DEXAMETHASONE. [Concomitant]
     Active Substance: DEXAMETHASONE
     Route: 042
  3. ZOFRAN [Concomitant]
     Active Substance: ONDANSETRON HYDROCHLORIDE
     Route: 042
  4. AVASTIN [Suspect]
     Active Substance: BEVACIZUMAB
     Indication: BREAST CANCER FEMALE
     Route: 042
     Dates: start: 20070116
  5. TAXOL [Concomitant]
     Active Substance: PACLITAXEL
  6. DEXAMETHASONE. [Concomitant]
     Active Substance: DEXAMETHASONE
     Route: 042
  7. DOCETAXEL. [Concomitant]
     Active Substance: DOCETAXEL
     Route: 042

REACTIONS (2)
  - Off label use [Unknown]
  - Death [Fatal]
